FAERS Safety Report 10428594 (Version 1)
Quarter: 2014Q3

REPORT INFORMATION
  Report Type: Spontaneous
  Country: FR (occurrence: None)
  Receive Date: 20140829
  Receipt Date: 20140829
  Transmission Date: 20150326
  Serious: Yes (Other)
  Sender: FDA-Public Use
  Company Number: IMP_07859_2014

PATIENT
  Age: 49 Year
  Sex: Male

DRUGS (1)
  1. BACLOFEN (BACLOFEN) [Suspect]
     Active Substance: BACLOFEN
     Indication: ALCOHOLISM
     Dosage: (PROGRESSIVE DOSE INCREASE) (180 MG, DAILY) (TAPERED TREATMENT OVER 5 DAYS)

REACTIONS (1)
  - Mania [None]
